FAERS Safety Report 9473645 (Version 1)
Quarter: 2013Q3

REPORT INFORMATION
  Report Type: Spontaneous
  Country: US (occurrence: US)
  Receive Date: 20130823
  Receipt Date: 20130823
  Transmission Date: 20140515
  Serious: Yes (Other)
  Sender: FDA-Public Use
  Company Number: US-BRISTOL-MYERS SQUIBB COMPANY-16812398

PATIENT
  Age: 70 Year
  Sex: Male
  Weight: 84.5 kg

DRUGS (13)
  1. SPRYCEL [Suspect]
     Indication: ACUTE LYMPHOCYTIC LEUKAEMIA
     Dates: start: 20120606
  2. LASIX [Concomitant]
  3. NEXIUM [Concomitant]
  4. JANUVIA [Concomitant]
  5. ACYCLOVIR [Concomitant]
  6. POTASSIUM [Concomitant]
  7. FLOMAX [Concomitant]
  8. GLYBURIDE [Concomitant]
  9. SIMVASTATIN [Concomitant]
  10. SPIRIVA [Concomitant]
  11. DUONEB [Concomitant]
  12. OXYCODONE [Concomitant]
     Indication: PAIN
  13. DECADRON [Concomitant]

REACTIONS (1)
  - Malignant neoplasm progression [Unknown]
